FAERS Safety Report 8159151-0 (Version None)
Quarter: 2012Q1

REPORT INFORMATION
  Report Type: 
  Country: None (occurrence: None)
  Receive Date: 20120223
  Receipt Date: 20120213
  Transmission Date: 20120608
  Serious: Yes (Life-Threatening, Hospitalization)
  Sender: FDA-Public Use
  Company Number: RU-TEVA-323912ISR

PATIENT
  Age: 61 Year
  Sex: Female

DRUGS (2)
  1. CARBAMAZEPINE [Suspect]
     Route: 048
  2. TOPAMAX [Suspect]
     Route: 048

REACTIONS (1)
  - LOSS OF CONSCIOUSNESS [None]
